FAERS Safety Report 23030269 (Version 2)
Quarter: 2023Q4

REPORT INFORMATION
  Report Type: Spontaneous
  Country: FR (occurrence: FR)
  Receive Date: 20231005
  Receipt Date: 20231127
  Transmission Date: 20240109
  Serious: Yes (Other)
  Sender: FDA-Public Use
  Company Number: FR-AUROBINDO-AUR-APL-2023-061953

PATIENT
  Age: 67 Year
  Sex: Male

DRUGS (10)
  1. PREDNISONE [Suspect]
     Active Substance: PREDNISONE
     Indication: Ulcerative keratitis
     Dosage: 0.5 MILLIGRAM/KILOGRAM, DAILY
     Route: 048
  2. PREDNISONE [Suspect]
     Active Substance: PREDNISONE
     Dosage: 40 MILLIGRAM, DAILY
     Route: 048
  3. PREDNISONE [Suspect]
     Active Substance: PREDNISONE
     Dosage: 15 MILLIGRAM, DAILY
     Route: 048
  4. DEXAMETHASONE [Concomitant]
     Active Substance: DEXAMETHASONE
     Indication: Ulcerative keratitis
     Dosage: UNK
     Route: 057
  5. DEXAMETHASONE [Concomitant]
     Active Substance: DEXAMETHASONE
     Indication: Ulcerative keratitis
     Dosage: 1 MILLIGRAM PER MILLILITRE
     Route: 061
  6. NORFLOXACIN [Concomitant]
     Active Substance: NORFLOXACIN
     Indication: Ulcerative keratitis
     Dosage: 3 MILLIGRAM PER MILLILITRE, FOUR TIMES/DAY
     Route: 061
  7. DORZOLAMIDE [Concomitant]
     Active Substance: DORZOLAMIDE
     Indication: Ocular hypertension
     Dosage: UNK
     Route: 065
  8. VITAMIN A [Concomitant]
     Active Substance: VITAMIN A
     Indication: Product used for unknown indication
     Dosage: UNK
     Route: 065
  9. IVERMECTIN [Concomitant]
     Active Substance: IVERMECTIN
     Indication: Parasitic infection prophylaxis
     Dosage: UNK
     Route: 065
  10. METHYLPREDNISOLONE [Concomitant]
     Active Substance: METHYLPREDNISOLONE
     Indication: Product used for unknown indication
     Dosage: 1 GRAM, DAILY FOR 3 CONSECUTIVE DAYS

REACTIONS (1)
  - Drug ineffective [Unknown]
